FAERS Safety Report 5551443-4 (Version None)
Quarter: 2007Q4

REPORT INFORMATION
  Report Type: 
  Country: None (occurrence: None)
  Receive Date: 20071128
  Receipt Date: 20070417
  Transmission Date: 20080405
  Serious: Yes (Other)
  Sender: FDA-Public Use
  Company Number: 2007031864

PATIENT
  Sex: Female
  Weight: 54 kg

DRUGS (1)
  1. LIPITOR [Suspect]
     Indication: BLOOD CHOLESTEROL INCREASED
     Dosage: 10 MG (10 MG, 1 IN 1 D)
     Dates: start: 20051201

REACTIONS (6)
  - ABNORMAL DREAMS [None]
  - ANXIETY [None]
  - GASTRITIS [None]
  - HEADACHE [None]
  - NAUSEA [None]
  - NERVOUSNESS [None]
